FAERS Safety Report 12778252 (Version 1)
Quarter: 2016Q3

REPORT INFORMATION
  Report Type: Spontaneous
  Country: GB (occurrence: GB)
  Receive Date: 20160926
  Receipt Date: 20160926
  Transmission Date: 20161109
  Serious: Yes (Other)
  Sender: FDA-Public Use
  Company Number: GB-CONCORDIA PHARMACEUTICALS INC.-GSH201609-004730

PATIENT
  Age: 84 Year
  Sex: Female

DRUGS (8)
  1. FORMOTEROL [Concomitant]
     Active Substance: FORMOTEROL
  2. IPRATROPIUM BROMIDE. [Concomitant]
     Active Substance: IPRATROPIUM BROMIDE
  3. THEOPHYLLINE [Concomitant]
     Active Substance: THEOPHYLLINE ANHYDROUS
  4. DIGOXIN. [Concomitant]
     Active Substance: DIGOXIN
  5. SALBUTAMOL [Concomitant]
     Active Substance: ALBUTEROL
  6. RANITIDINE. [Concomitant]
     Active Substance: RANITIDINE
  7. LOPERAMIDE [Concomitant]
     Active Substance: LOPERAMIDE
  8. PREDNISOLONE. [Suspect]
     Active Substance: PREDNISOLONE
     Indication: CHRONIC OBSTRUCTIVE PULMONARY DISEASE
     Dosage: VARYING DOSES FOR COPD
     Route: 048
     Dates: start: 2015, end: 2016

REACTIONS (1)
  - Diabetes mellitus [Not Recovered/Not Resolved]

NARRATIVE: CASE EVENT DATE: 2015
